FAERS Safety Report 25467823 (Version 1)
Quarter: 2025Q2

REPORT INFORMATION
  Report Type: Spontaneous
  Country: US (occurrence: None)
  Receive Date: 20250623
  Receipt Date: 20250623
  Transmission Date: 20250716
  Serious: Yes (Hospitalization)
  Sender: FDA-CTU
  Company Number: None

PATIENT
  Age: 42 Year
  Sex: Female
  Weight: 77.11 kg

DRUGS (1)
  1. CISPLATIN [Suspect]
     Active Substance: CISPLATIN
     Indication: Cervix carcinoma
     Route: 040
     Dates: start: 20250609, end: 20250609

REACTIONS (2)
  - Acute kidney injury [None]
  - Dialysis [None]

NARRATIVE: CASE EVENT DATE: 20250609
